FAERS Safety Report 5441196-2 (Version None)
Quarter: 2007Q3

REPORT INFORMATION
  Report Type: 
  Country: None (occurrence: None)
  Receive Date: 20070901
  Receipt Date: 20070821
  Transmission Date: 20080115
  Serious: Yes (Other)
  Sender: FDA-Public Use
  Company Number: US-PFIZER INC-2007070374

PATIENT
  Age: 47 Year
  Sex: Female
  Weight: 57.6 kg

DRUGS (5)
  1. GABAPENTIN [Suspect]
     Indication: NEUROPATHY PERIPHERAL
     Dosage: DAILY DOSE:900MG
  2. TRAZODONE HCL [Suspect]
     Indication: INSOMNIA
  3. PREMPRO [Concomitant]
  4. METOPROLOL SUCCINATE [Concomitant]
  5. THIAMINE HCL [Concomitant]

REACTIONS (4)
  - DRUG INEFFECTIVE [None]
  - GENITAL HERPES [None]
  - INSOMNIA [None]
  - PAIN IN EXTREMITY [None]
